FAERS Safety Report 10585992 (Version 3)
Quarter: 2014Q4

REPORT INFORMATION
  Report Type: Report from Study
  Country: DE (occurrence: DE)
  Receive Date: 20141115
  Receipt Date: 20141231
  Transmission Date: 20150529
  Serious: Yes (Hospitalization, Other)
  Sender: FDA-Public Use
  Company Number: DE-ABBVIE-14K-062-1307769-00

PATIENT
  Age: 71 Year
  Sex: Female
  Weight: 58 kg

DRUGS (12)
  1. NOVALGIN [Concomitant]
     Active Substance: METAMIZOLE SODIUM
     Indication: PRODUCT USED FOR UNKNOWN INDICATION
     Dosage: 1-1-1-1
     Dates: end: 2014
  2. MOTILIUM [Concomitant]
     Active Substance: DOMPERIDONE
     Indication: PRODUCT USED FOR UNKNOWN INDICATION
     Dosage: 20 DROPS THRICE
  3. BIFITERAL [Concomitant]
     Active Substance: LACTULOSE
     Indication: PRODUCT USED FOR UNKNOWN INDICATION
  4. PANTOZOL [Concomitant]
     Active Substance: PANTOPRAZOLE SODIUM
     Dosage: 0-0-1
     Dates: start: 2014
  5. HUMIRA [Suspect]
     Active Substance: ADALIMUMAB
     Indication: RHEUMATOID ARTHRITIS
     Route: 058
     Dates: start: 20060907, end: 20140918
  6. PANTOZOL [Concomitant]
     Active Substance: PANTOPRAZOLE SODIUM
     Indication: PRODUCT USED FOR UNKNOWN INDICATION
     Dosage: 1-0-0
     Dates: end: 2014
  7. EUTHYROX [Concomitant]
     Active Substance: LEVOTHYROXINE SODIUM
     Indication: PRODUCT USED FOR UNKNOWN INDICATION
  8. OXYCODON [Concomitant]
     Active Substance: OXYCODONE
     Dosage: 1-0-1
     Dates: start: 2014
  9. CLEXANE [Concomitant]
     Active Substance: ENOXAPARIN SODIUM
     Indication: THROMBOSIS PROPHYLAXIS
     Route: 058
     Dates: start: 201410
  10. NOVALGIN [Concomitant]
     Active Substance: METAMIZOLE SODIUM
     Dates: start: 2014
  11. OXYCODON [Concomitant]
     Active Substance: OXYCODONE
     Indication: PRODUCT USED FOR UNKNOWN INDICATION
     Dosage: 1-0-1
     Dates: end: 2014
  12. IBUPROFEN. [Concomitant]
     Active Substance: IBUPROFEN
     Indication: PRODUCT USED FOR UNKNOWN INDICATION
     Dosage: 1-1-1

REACTIONS (18)
  - Pelvic fracture [Unknown]
  - Intervertebral disc protrusion [Unknown]
  - Pubis fracture [Unknown]
  - Arthropathy [Not Recovered/Not Resolved]
  - Monarthritis [Unknown]
  - Sacroiliitis [Not Recovered/Not Resolved]
  - Vertigo [Unknown]
  - Pelvic pain [Unknown]
  - Acetabulum fracture [Unknown]
  - Sacroiliac fracture [Unknown]
  - Weight decreased [Unknown]
  - Anaemia postoperative [Unknown]
  - Nausea [Unknown]
  - Bedridden [Not Recovered/Not Resolved]
  - Joint instability [Not Recovered/Not Resolved]
  - Fall [Unknown]
  - Pain [Not Recovered/Not Resolved]
  - Fractured ischium [Unknown]

NARRATIVE: CASE EVENT DATE: 2014
